FAERS Safety Report 6772067-7 (Version None)
Quarter: 2010Q2

REPORT INFORMATION
  Report Type: 
  Country: None (occurrence: None)
  Receive Date: 20100616
  Receipt Date: 20100609
  Transmission Date: 20101027
  Serious: Yes (Hospitalization)
  Sender: FDA-Public Use
  Company Number: A0864034A

PATIENT
  Sex: Male

DRUGS (4)
  1. PAXIL [Suspect]
     Indication: POST-TRAUMATIC STRESS DISORDER
     Dosage: 80MG IN THE MORNING
     Route: 048
  2. KLONOPIN [Suspect]
     Indication: DRUG USE FOR UNKNOWN INDICATION
  3. ALCOHOL [Suspect]
     Indication: ALCOHOL USE
     Route: 048
  4. INTERFERON [Concomitant]
     Indication: HEPATITIS B

REACTIONS (4)
  - ACCIDENTAL OVERDOSE [None]
  - BLOOD ALCOHOL INCREASED [None]
  - DISORIENTATION [None]
  - DRUG INTERACTION [None]
